FAERS Safety Report 5203798-8 (Version None)
Quarter: 2007Q1

REPORT INFORMATION
  Report Type: 
  Country: None (occurrence: None)
  Receive Date: 20070109
  Receipt Date: 20070109
  Transmission Date: 20070707
  Serious: Yes (Life-Threatening)
  Sender: FDA-Public Use
  Company Number: None

PATIENT
  Age: 53 Year
  Sex: Female
  Weight: 57.1532 kg

DRUGS (1)
  1. CETUXIMAB 100MG / 50ML IMCLONE SYSTEMS INC. [Suspect]
     Indication: SMALL CELL LUNG CANCER METASTATIC
     Dosage: 652 MG-400 MG/M2- DAY -14 ONLY IV DRIP
     Route: 041
     Dates: start: 20070105

REACTIONS (3)
  - BRONCHOSPASM [None]
  - DRUG HYPERSENSITIVITY [None]
  - INFUSION RELATED REACTION [None]
